FAERS Safety Report 8325584-2 (Version None)
Quarter: 2012Q2

REPORT INFORMATION
  Report Type: 
  Country: None (occurrence: None)
  Receive Date: 20120427
  Receipt Date: 20120416
  Transmission Date: 20120825
  Serious: Yes (Death, Hospitalization)
  Sender: FDA-Public Use
  Company Number: DSA_55625_2012

PATIENT
  Sex: Female

DRUGS (9)
  1. XENAZINE [Suspect]
     Indication: TORTICOLLIS
     Dosage: (12.5 MG TID ORAL)
     Route: 048
     Dates: start: 20110411, end: 20120201
  2. RISPERDAL [Concomitant]
  3. BACLOFEN [Concomitant]
  4. FLUOXETINE [Concomitant]
  5. TRILEPTAL [Concomitant]
  6. DYSPORT /01136801/ [Concomitant]
  7. CLONAZEPAM [Concomitant]
  8. KEPPRA [Concomitant]
  9. ALBUTEROL [Concomitant]

REACTIONS (2)
  - RESPIRATORY DISTRESS [None]
  - PNEUMONIA [None]
